FAERS Safety Report 14799868 (Version 3)
Quarter: 2018Q2

REPORT INFORMATION
  Report Type: Spontaneous
  Country: NL (occurrence: NL)
  Receive Date: 20180424
  Receipt Date: 20180511
  Transmission Date: 20180711
  Serious: Yes (Other)
  Sender: FDA-Public Use
  Company Number: NL-GLENMARK PHARMACEUTICALS-2018GMK034580

PATIENT

DRUGS (5)
  1. LEVETIRACETAM. [Suspect]
     Active Substance: LEVETIRACETAM
     Indication: STATUS EPILEPTICUS
     Dosage: 600 MG, OD, MAINTENANCE THERAPY
     Route: 065
     Dates: start: 2015, end: 201505
  2. TOPIRAMATE. [Suspect]
     Active Substance: TOPIRAMATE
     Indication: EPILEPSY
     Dosage: UNK, MAINTENANCE THERAPY
     Route: 065
     Dates: start: 201505
  3. PHENYTOIN. [Concomitant]
     Active Substance: PHENYTOIN
     Dosage: 10 MG/KG, INTRAVENOUS ADMINISTRATION AT THE EMERGENCY DEPARTMENT
     Route: 042
  4. ZONISAMIDE. [Suspect]
     Active Substance: ZONISAMIDE
     Indication: EPILEPSY
     Dosage: UNK, MAINTENANCE THERAPY
     Route: 065
     Dates: start: 201602, end: 201606
  5. PHENYTOIN. [Concomitant]
     Active Substance: PHENYTOIN
     Indication: STATUS EPILEPTICUS
     Dosage: 10 MG/KG, ADMINISTRATION OF ORAL PHENYTOIN AT HOME
     Route: 048

REACTIONS (8)
  - Seizure [Unknown]
  - Abnormal behaviour [Unknown]
  - Condition aggravated [Unknown]
  - Encephalopathy [Recovered/Resolved]
  - Apathy [Unknown]
  - Ataxia [Recovered/Resolved]
  - Dysarthria [Recovered/Resolved]
  - Drug ineffective [Unknown]

NARRATIVE: CASE EVENT DATE: 2015
